FAERS Safety Report 6083697-2 (Version None)
Quarter: 2009Q1

REPORT INFORMATION
  Report Type: 
  Country: None (occurrence: None)
  Receive Date: 20090209
  Receipt Date: 20071210
  Transmission Date: 20090719
  Serious: Yes (Other)
  Sender: FDA-Public Use
  Company Number: VAL_00001_2007

PATIENT
  Sex: Male

DRUGS (1)
  1. EQUETRO [Suspect]
     Indication: DRUG USE FOR UNKNOWN INDICATION
     Dosage: (DF)

REACTIONS (1)
  - STEVENS-JOHNSON SYNDROME [None]
